FAERS Safety Report 7412497-3 (Version None)
Quarter: 2011Q2

REPORT INFORMATION
  Report Type: 
  Country: None (occurrence: None)
  Receive Date: 20110408
  Receipt Date: 20110408
  Transmission Date: 20111010
  Serious: Yes (Other)
  Sender: FDA-Public Use
  Company Number: None

PATIENT
  Sex: Female

DRUGS (1)
  1. HUMIRA [Suspect]
     Indication: CROHN'S DISEASE
     Dosage: 40MG EVERY OTHER WEEK SQ
     Route: 058
     Dates: start: 20101015, end: 20110115

REACTIONS (3)
  - MYALGIA [None]
  - ARTHRALGIA [None]
  - HEADACHE [None]
